FAERS Safety Report 18092336 (Version 1)
Quarter: 2020Q3

REPORT INFORMATION
  Report Type: Spontaneous
  Country: US (occurrence: US)
  Receive Date: 20200729
  Receipt Date: 20200729
  Transmission Date: 20201103
  Serious: Yes (Disabling, Other)
  Sender: FDA-Public Use
  Company Number: None

PATIENT
  Age: 57 Year
  Sex: Female
  Weight: 47.25 kg

DRUGS (7)
  1. LOSARTAN. [Concomitant]
     Active Substance: LOSARTAN
  2. MULTI?VITAMIN WOMEN^S 50+ [Concomitant]
  3. ESTRADIOL. [Concomitant]
     Active Substance: ESTRADIOL
  4. SUDAFED [Concomitant]
     Active Substance: PSEUDOEPHEDRINE HYDROCHLORIDE
  5. PROGESTERONE. [Concomitant]
     Active Substance: PROGESTERONE
  6. MACRODANTIN [Concomitant]
     Active Substance: NITROFURANTOIN
  7. ANTI?BAC HAND SANITIZER [Suspect]
     Active Substance: ALCOHOL
     Indication: COVID-19 PROPHYLAXIS
     Route: 061

REACTIONS (8)
  - Muscular weakness [None]
  - Nervous system disorder [None]
  - Tremor [None]
  - Muscle disorder [None]
  - Limb discomfort [None]
  - Recalled product administered [None]
  - Resting tremor [None]
  - Toxicity to various agents [None]

NARRATIVE: CASE EVENT DATE: 20200525
